FAERS Safety Report 8208202-3 (Version None)
Quarter: 2012Q1

REPORT INFORMATION
  Report Type: 
  Country: None (occurrence: None)
  Receive Date: 20120314
  Receipt Date: 20120308
  Transmission Date: 20120608
  Serious: Yes (Death, Hospitalization)
  Sender: FDA-Public Use
  Company Number: MX-SANOFI-AVENTIS-2012SA016004

PATIENT
  Age: 87 Year
  Sex: Female
  Weight: 45 kg

DRUGS (4)
  1. METOPROLOL [Concomitant]
     Route: 048
     Dates: end: 20120108
  2. FUROSEMIDE [Concomitant]
     Route: 048
     Dates: end: 20120108
  3. OMEPRAZOLE [Concomitant]
     Route: 048
     Dates: end: 20120108
  4. LANTUS [Suspect]
     Indication: TYPE 2 DIABETES MELLITUS
     Route: 058
     Dates: start: 20090101, end: 20120108

REACTIONS (1)
  - MYOCARDIAL INFARCTION [None]
